FAERS Safety Report 7424032-4 (Version None)
Quarter: 2011Q2

REPORT INFORMATION
  Report Type: 
  Country: None (occurrence: None)
  Receive Date: 20110419
  Receipt Date: 20101116
  Transmission Date: 20111010
  Serious: Yes (Hospitalization, Other)
  Sender: FDA-Public Use
  Company Number: US-BAYER-201022995NA

PATIENT
  Age: 19 Year
  Sex: Female
  Weight: 72.562 kg

DRUGS (7)
  1. YASMIN [Suspect]
     Indication: CONTRACEPTION
     Dosage: 1 DF, QD
     Route: 048
     Dates: start: 20060101, end: 20090101
  2. AMOXIL [Concomitant]
  3. ASCORBIC ACID [Concomitant]
     Dosage: UNK
     Dates: start: 20070101, end: 20090101
  4. ASPIRIN [Concomitant]
  5. LANSOPRAZOLE [Concomitant]
  6. CLINDAMYCIN [Concomitant]
  7. PREDNISONE [Concomitant]

REACTIONS (8)
  - GALLBLADDER INJURY [None]
  - ABDOMINAL PAIN UPPER [None]
  - DIARRHOEA [None]
  - CHOLELITHIASIS [None]
  - CHEST PAIN [None]
  - DYSPNOEA [None]
  - BILE ACID MALABSORPTION [None]
  - ABDOMINAL PAIN LOWER [None]
